FAERS Safety Report 8159129-7 (Version None)
Quarter: 2012Q1

REPORT INFORMATION
  Report Type: 
  Country: None (occurrence: None)
  Receive Date: 20120223
  Receipt Date: 20120213
  Transmission Date: 20120608
  Serious: Yes (Hospitalization)
  Sender: FDA-Public Use
  Company Number: DK-BAXTER-2012BH004284

PATIENT
  Age: 62 Year
  Sex: Male
  Weight: 109 kg

DRUGS (10)
  1. NEUPOGEN [Suspect]
     Indication: DIFFUSE LARGE B-CELL LYMPHOMA
     Dosage: 6 MG, UNK
     Route: 058
     Dates: start: 20110815
  2. AMOXICILLIN AND CLAVULANATE POTASSIUM [Concomitant]
     Indication: PRODUCT USED FOR UNKNOWN INDICATION
     Dosage: 500 MG, UNK
     Route: 048
     Dates: start: 20110818
  3. VINCRISTINE SULFATE [Suspect]
     Indication: DIFFUSE LARGE B-CELL LYMPHOMA
     Dosage: 2 MG, UNK
     Route: 042
     Dates: start: 20110811, end: 20110901
  4. CIPROFLOXACIN [Concomitant]
     Indication: PROPHYLAXIS
     Dosage: 1000 MG, UNK
     Route: 048
     Dates: start: 20110818
  5. CYCLOPHOSPHAMIDE [Suspect]
     Indication: DIFFUSE LARGE B-CELL LYMPHOMA
     Dosage: 1800 MG, UNK
     Route: 042
     Dates: start: 20110811, end: 20110901
  6. PREDNISOLONE [Suspect]
     Indication: DIFFUSE LARGE B-CELL LYMPHOMA
     Dosage: 100 MG, UNK
     Route: 042
     Dates: start: 20110811, end: 20110901
  7. DOXORUBICIN HCL [Suspect]
     Indication: DIFFUSE LARGE B-CELL LYMPHOMA
     Dosage: 125 MG, UNK
     Route: 042
     Dates: start: 20110811, end: 20110901
  8. RITUXIMAB [Suspect]
     Indication: DIFFUSE LARGE B-CELL LYMPHOMA
     Route: 042
     Dates: start: 20110811
  9. NEUPOGEN [Suspect]
     Dosage: 6 MG, UNK
     Route: 058
     Dates: start: 20110904
  10. SULFAMETHIZOLE TAB [Concomitant]
     Indication: PROPHYLAXIS
     Dosage: UNK
     Route: 048
     Dates: start: 20110812

REACTIONS (2)
  - PNEUMONIA [None]
  - ERYSIPELAS [None]
